FAERS Safety Report 13757725 (Version 1)
Quarter: 2017Q3

REPORT INFORMATION
  Report Type: Spontaneous
  Country: US (occurrence: US)
  Receive Date: 20170717
  Receipt Date: 20170717
  Transmission Date: 20171127
  Serious: No
  Sender: FDA-Public Use
  Company Number: US-AUROBINDO-AUR-APU-2017-01096

PATIENT
  Sex: Female

DRUGS (1)
  1. VALACYCLOVIR [Suspect]
     Active Substance: VALACYCLOVIR HYDROCHLORIDE
     Indication: HEPATITIS B
     Dosage: 1 DF, ONCE A DAY
     Route: 065
     Dates: start: 20170111, end: 20170111

REACTIONS (2)
  - Dizziness [Unknown]
  - Expired product administered [Unknown]
